FAERS Safety Report 6191218-9 (Version None)
Quarter: 2009Q2

REPORT INFORMATION
  Report Type: 
  Country: None (occurrence: None)
  Receive Date: 20090515
  Receipt Date: 20090507
  Transmission Date: 20091009
  Serious: Yes (Hospitalization, Other)
  Sender: FDA-Public Use
  Company Number: US-CELGENEUS-163-21880-09050542

PATIENT
  Sex: Male

DRUGS (1)
  1. REVLIMID [Suspect]
     Route: 048
     Dates: start: 20090201

REACTIONS (4)
  - ARTHRITIS INFECTIVE [None]
  - FALL [None]
  - JOINT INJURY [None]
  - WHITE BLOOD CELL COUNT DECREASED [None]
